FAERS Safety Report 6973137-0 (Version None)
Quarter: 2010Q3

REPORT INFORMATION
  Report Type: 
  Country: None (occurrence: None)
  Receive Date: 20100909
  Receipt Date: 20100902
  Transmission Date: 20110219
  Serious: Yes (Death, Other)
  Sender: FDA-Public Use
  Company Number: GB-ROCHE-707880

PATIENT
  Age: 40 Year
  Sex: Female

DRUGS (2)
  1. GRANISETRON HYDROCHLORIDE [Suspect]
     Route: 048
     Dates: start: 20060629, end: 20060703
  2. SANCUSO [Suspect]
     Route: 062
     Dates: start: 20060709, end: 20060715

REACTIONS (3)
  - MEGACOLON [None]
  - NON-HODGKIN'S LYMPHOMA RECURRENT [None]
  - TUMOUR LYSIS SYNDROME [None]
